FAERS Safety Report 8182887-2 (Version None)
Quarter: 2012Q1

REPORT INFORMATION
  Report Type: 
  Country: None (occurrence: None)
  Receive Date: 20120305
  Receipt Date: 20120223
  Transmission Date: 20120608
  Serious: Yes (Other)
  Sender: FDA-Public Use
  Company Number: JP-BRISTOL-MYERS SQUIBB COMPANY-16421554

PATIENT

DRUGS (1)
  1. BARACLUDE [Suspect]
     Indication: HEPATITIS B
     Route: 048
     Dates: start: 20111108

REACTIONS (3)
  - HEPATITIS B DNA INCREASED [None]
  - LIVER DISORDER [None]
  - EOSINOPHIL COUNT INCREASED [None]
